FAERS Safety Report 12428478 (Version 1)
Quarter: 2016Q2

REPORT INFORMATION
  Report Type: Spontaneous
  Country: FR (occurrence: FR)
  Receive Date: 20160602
  Receipt Date: 20160602
  Transmission Date: 20160815
  Serious: Yes (Hospitalization, Other)
  Sender: FDA-Public Use
  Company Number: FR-ELI_LILLY_AND_COMPANY-FR201606000196

PATIENT
  Age: 59 Year
  Sex: Male

DRUGS (1)
  1. ERBITUX [Suspect]
     Active Substance: CETUXIMAB
     Indication: NEOPLASM MALIGNANT
     Dosage: 705 MG, WEEKLY (1/W)
     Route: 042
     Dates: start: 20160517, end: 20160517

REACTIONS (4)
  - Glossodynia [Recovered/Resolved]
  - Pruritus [Recovered/Resolved]
  - Gingival pain [Recovered/Resolved]
  - Rash [Recovered/Resolved]

NARRATIVE: CASE EVENT DATE: 20160517
